FAERS Safety Report 8014568-X (Version None)
Quarter: 2011Q4

REPORT INFORMATION
  Report Type: 
  Country: None (occurrence: None)
  Receive Date: 20111229
  Receipt Date: 20111213
  Transmission Date: 20120403
  Serious: Yes (Hospitalization)
  Sender: FDA-Public Use
  Company Number: FR-PFIZER INC-K201101039

PATIENT
  Age: 74 Year
  Sex: Male
  Weight: 107 kg

DRUGS (8)
  1. FRAGMIN [Concomitant]
     Dosage: UNK
     Dates: start: 20110314, end: 20110401
  2. ALTACE [Suspect]
     Indication: ESSENTIAL HYPERTENSION
     Dosage: 10 MG, 1X/DAY
     Route: 048
     Dates: end: 20110405
  3. GARAMYCIN [Suspect]
     Indication: ACUTE ENDOCARDITIS
     Dosage: 100 MG, 3X/DAY
     Route: 042
     Dates: start: 20110316, end: 20110404
  4. TORASEMIDE [Suspect]
     Indication: MYOCARDIAL ISCHAEMIA
     Dosage: 5-15 MG DAILY
     Route: 048
     Dates: start: 20110315
  5. ASPIRIN [Concomitant]
     Dosage: UNK
  6. ALLOPURINOL [Concomitant]
     Dosage: 300 MG, 1X/DAY
     Dates: end: 20110405
  7. AMOXICILLIN [Concomitant]
     Dosage: 12 G DAILY I.V. IN SIX 2 G DOSES
     Route: 042
     Dates: start: 20110314, end: 20110406
  8. SIMVASTATIN [Concomitant]
     Dosage: UNK

REACTIONS (6)
  - SEPSIS [None]
  - SYSTEMIC INFLAMMATORY RESPONSE SYNDROME [None]
  - RENAL FAILURE ACUTE [None]
  - DRUG LEVEL INCREASED [None]
  - DRUG INTERACTION [None]
  - ENDOCARDITIS [None]
